FAERS Safety Report 7751058-3 (Version None)
Quarter: 2011Q3

REPORT INFORMATION
  Report Type: 
  Country: None (occurrence: None)
  Receive Date: 20110914
  Receipt Date: 20110208
  Transmission Date: 20111222
  Serious: No
  Sender: FDA-Public Use
  Company Number: US-MYLANLABS-2010S1022149

PATIENT
  Age: 69 Year
  Sex: Female
  Weight: 53.52 kg

DRUGS (10)
  1. TOPROL-XL [Concomitant]
  2. PREMARIN [Concomitant]
  3. CLONIDINE HYDROCHLORIDE [Suspect]
     Route: 048
     Dates: start: 20090101, end: 20110101
  4. CLONIDINE HYDROCHLORIDE [Suspect]
     Indication: BLOOD PRESSURE INCREASED
     Route: 048
     Dates: start: 20090101, end: 20110101
  5. CLONIDINE HYDROCHLORIDE [Suspect]
     Route: 048
     Dates: start: 20110101
  6. SPIRONOLACTONE [Suspect]
     Route: 048
     Dates: start: 20090101, end: 20110101
  7. LOVASTATIN [Concomitant]
  8. SPIRONOLACTONE [Suspect]
     Indication: BLOOD PRESSURE INCREASED
     Route: 048
     Dates: start: 20090101, end: 20110101
  9. PLAVIX [Concomitant]
  10. SPIRONOLACTONE [Suspect]
     Route: 048
     Dates: start: 20110101

REACTIONS (3)
  - BLOOD PRESSURE INADEQUATELY CONTROLLED [None]
  - DRUG INEFFECTIVE [None]
  - HEART RATE INCREASED [None]
